FAERS Safety Report 6755545-6 (Version None)
Quarter: 2010Q2

REPORT INFORMATION
  Report Type: 
  Country: None (occurrence: None)
  Receive Date: 20100602
  Receipt Date: 20100521
  Transmission Date: 20101027
  Serious: Yes (Other)
  Sender: FDA-Public Use
  Company Number: 2010SP017182

PATIENT
  Age: 58 Year
  Sex: Female

DRUGS (1)
  1. MIRTAZAPINE [Suspect]
     Indication: DEPRESSION
     Dosage: 1 DF; QD; PO
     Route: 048

REACTIONS (4)
  - BASAL CELL CARCINOMA [None]
  - NEOPLASM RECURRENCE [None]
  - NO THERAPEUTIC RESPONSE [None]
  - PHOTOSENSITIVITY REACTION [None]
